FAERS Safety Report 4954655-3 (Version None)
Quarter: 2006Q1

REPORT INFORMATION
  Report Type: 
  Country: None (occurrence: None)
  Receive Date: 20060327
  Receipt Date: 20030430
  Transmission Date: 20060701
  Serious: Yes (Death)
  Sender: FDA-Public Use
  Company Number: IR-ROCHE-337161

PATIENT
  Age: 26 Year
  Sex: Male
  Weight: 51 kg

DRUGS (6)
  1. PEG-INTERFERON ALFA 2A (RO 25-8310) [Suspect]
     Route: 058
     Dates: start: 20020422, end: 20030317
  2. INSULIN [Suspect]
     Route: 065
     Dates: end: 20030323
  3. DESFERAL [Concomitant]
     Dates: end: 20030323
  4. CALCIUM CARBONATE [Concomitant]
     Route: 048
     Dates: end: 20030323
  5. VITAMIN D3 [Concomitant]
     Route: 048
     Dates: end: 20030323
  6. BLOOD TRANSFUSION NOS [Concomitant]

REACTIONS (3)
  - CEREBRAL INFARCTION [None]
  - CEREBROVASCULAR ACCIDENT [None]
  - HYPOGLYCAEMIA [None]
